FAERS Safety Report 4422665-0 (Version None)
Quarter: 2004Q3

REPORT INFORMATION
  Report Type: 
  Country: None (occurrence: None)
  Receive Date: 20040809
  Receipt Date: 20040722
  Transmission Date: 20050211
  Serious: Yes (Hospitalization)
  Sender: FDA-Public Use
  Company Number: 173722

PATIENT
  Age: 55 Year
  Sex: Male
  Weight: 95.709 kg

DRUGS (12)
  1. AVONEX [Suspect]
     Indication: MULTIPLE SCLEROSIS
     Dosage: 30 MCG QW IM
     Route: 030
     Dates: start: 20010601, end: 20030526
  2. CELEBREX [Concomitant]
  3. ZOCOR [Concomitant]
  4. MULTIVITAMIN [Concomitant]
  5. PRIMROSE OIL [Concomitant]
  6. FISH OIL [Concomitant]
  7. VITAMIN E [Concomitant]
  8. VITAMIN C [Concomitant]
  9. TYLENOL [Concomitant]
  10. GLUTOFAC [Concomitant]
  11. VITAMIN E [Concomitant]
  12. GINKGO BILOBA [Concomitant]

REACTIONS (11)
  - ABDOMINAL PAIN [None]
  - ALANINE AMINOTRANSFERASE INCREASED [None]
  - ARTERITIS [None]
  - BACK PAIN [None]
  - DIAPHRAGMATIC DISORDER [None]
  - HAEMOGLOBIN DECREASED [None]
  - HEPATIC ENZYME INCREASED [None]
  - HEPATIC PAIN [None]
  - INFECTION [None]
  - PROSTATITIS [None]
  - PYREXIA [None]
